FAERS Safety Report 9882307 (Version 1)
Quarter: 2014Q1

REPORT INFORMATION
  Report Type: Spontaneous
  Country: US (occurrence: US)
  Receive Date: 20140207
  Receipt Date: 20140207
  Transmission Date: 20141002
  Serious: Yes (Other)
  Sender: FDA-Public Use
  Company Number: US-GLAXOSMITHKLINE-A1058704A

PATIENT
  Age: 53 Year
  Sex: Female

DRUGS (4)
  1. ADVAIR HFA [Suspect]
     Indication: ASTHMA
     Dosage: 1PUFF TWICE PER DAY
     Route: 055
     Dates: start: 200202
  2. VENTOLIN HFA [Suspect]
     Indication: ASTHMA
     Dosage: 2PUFF AS REQUIRED
     Route: 055
     Dates: start: 2012
  3. SPIRIVA [Concomitant]
  4. OXYCODONE [Concomitant]

REACTIONS (3)
  - Bladder cancer [Not Recovered/Not Resolved]
  - Bone pain [Not Recovered/Not Resolved]
  - Tooth disorder [Not Recovered/Not Resolved]
